FAERS Safety Report 4351333-9 (Version None)
Quarter: 2004Q2

REPORT INFORMATION
  Report Type: 
  Country: None (occurrence: None)
  Receive Date: 20040503
  Receipt Date: 20040421
  Transmission Date: 20050107
  Serious: Yes (Death, Hospitalization)
  Sender: FDA-Public Use
  Company Number: DE-JNJFOC-20040200986

PATIENT
  Sex: Male
  Weight: 90 kg

DRUGS (7)
  1. RISPERDAL [Suspect]
     Route: 049
  2. RISPERDAL [Suspect]
     Route: 049
  3. RISPERDAL [Suspect]
     Dosage: 2-0-3
     Route: 049
  4. RISPERDAL [Suspect]
     Dosage: 0-0-2
     Route: 049
  5. METFORMIN HCL [Concomitant]
     Indication: DIABETES MELLITUS NON-INSULIN-DEPENDENT
     Dosage: 1-0-0
     Route: 049
  6. LACTULOSE [Concomitant]
     Indication: CONSTIPATION
     Route: 049
  7. GLYBURIDE [Concomitant]
     Indication: DIABETES MELLITUS NON-INSULIN-DEPENDENT
     Dosage: 7-0-3.5
     Route: 049

REACTIONS (16)
  - AGORAPHOBIA [None]
  - ARRHYTHMIA [None]
  - BLOOD GLUCOSE INCREASED [None]
  - DEEP VEIN THROMBOSIS [None]
  - DYSPNOEA [None]
  - EXTRAPYRAMIDAL DISORDER [None]
  - NEUROLEPTIC MALIGNANT SYNDROME [None]
  - OXYGEN SATURATION DECREASED [None]
  - PNEUMONIA [None]
  - PULMONARY EMBOLISM [None]
  - RESTLESSNESS [None]
  - SALIVARY HYPERSECRETION [None]
  - SLEEP DISORDER [None]
  - SOMNOLENCE [None]
  - THINKING ABNORMAL [None]
  - VERTIGO [None]
